FAERS Safety Report 6175551-2 (Version None)
Quarter: 2009Q2

REPORT INFORMATION
  Report Type: 
  Country: None (occurrence: None)
  Receive Date: 20090501
  Receipt Date: 20090420
  Transmission Date: 20091009
  Serious: Yes (Other)
  Sender: FDA-Public Use
  Company Number: US-JNJFOC-20090204344

PATIENT
  Sex: Male
  Weight: 114.31 kg

DRUGS (20)
  1. REMICADE [Suspect]
     Route: 042
  2. REMICADE [Suspect]
     Indication: CROHN'S DISEASE
     Route: 042
  3. AZATHIOPRINE [Concomitant]
  4. CENTRUM VITAMIN [Concomitant]
  5. ZYRTEC [Concomitant]
  6. ALBUTEROL SULFATE [Concomitant]
     Dosage: AS NEEDED
  7. MINOCYCLINE HCL [Concomitant]
     Indication: ROSACEA
     Dosage: AS NEEDED
  8. ALLOPURINOL [Concomitant]
  9. ASPIRIN [Concomitant]
  10. FUROSEMIDE [Concomitant]
  11. FUROSEMIDE [Concomitant]
  12. SLOW-MAG [Concomitant]
  13. ALPRAZOLAM [Concomitant]
  14. BUDESONIDE [Concomitant]
  15. LISINOPRIL [Concomitant]
  16. CORTIZONE [Concomitant]
  17. OSCAL [Concomitant]
  18. ELIDEL [Concomitant]
     Dosage: AS NEEDED
  19. MUPIROCIN [Concomitant]
     Indication: DRY SKIN
     Dosage: AS NEEDED
  20. PROMETHAZINE [Concomitant]

REACTIONS (4)
  - DRY SKIN [None]
  - FLUID RETENTION [None]
  - JOINT STIFFNESS [None]
  - LYMPHOMA [None]
